FAERS Safety Report 10732989 (Version 1)
Quarter: 2015Q1

REPORT INFORMATION
  Report Type: Spontaneous
  Country: US (occurrence: None)
  Receive Date: 20150120
  Receipt Date: 20150120
  Transmission Date: 20150721
  Serious: Yes (Hospitalization)
  Sender: FDA-Public Use
  Company Number: ABR_01933_2015

PATIENT
  Age: 23 Year
  Sex: Male

DRUGS (2)
  1. FLUDROCORTISONE [Concomitant]
     Active Substance: FLUDROCORTISONE
  2. LAMOTRIGINE. [Suspect]
     Active Substance: LAMOTRIGINE
     Indication: PRODUCT USED FOR UNKNOWN INDICATION

REACTIONS (13)
  - Toxicity to various agents [None]
  - Ataxia [None]
  - Generalised tonic-clonic seizure [None]
  - Overdose [None]
  - Blood pressure diastolic decreased [None]
  - Agitation [None]
  - Delirium [None]
  - Tachypnoea [None]
  - Blood pressure systolic increased [None]
  - Anxiety [None]
  - Lethargy [None]
  - Myoclonus [None]
  - Coma [None]
